FAERS Safety Report 23492727 (Version 1)
Quarter: 2024Q1

REPORT INFORMATION
  Report Type: Spontaneous
  Country: BR (occurrence: BR)
  Receive Date: 20240207
  Receipt Date: 20240207
  Transmission Date: 20240409
  Serious: Yes (Hospitalization, Other)
  Sender: FDA-Public Use
  Company Number: BR-UCBSA-2024005992

PATIENT
  Age: 79 Year
  Sex: Female

DRUGS (1)
  1. KEPPRA [Suspect]
     Active Substance: LEVETIRACETAM
     Indication: Epilepsy
     Dosage: 7.5 ML IN THE MORNING AND 5 ML IN THE EVENING,TWICE A DAY
     Route: 048
     Dates: start: 2022

REACTIONS (4)
  - Abdominal pain [Recovering/Resolving]
  - Blood gases abnormal [Recovering/Resolving]
  - Klebsiella bacteraemia [Recovering/Resolving]
  - Incorrect dose administered [Unknown]

NARRATIVE: CASE EVENT DATE: 20220101
